FAERS Safety Report 20751850 (Version 4)
Quarter: 2022Q3

REPORT INFORMATION
  Report Type: Spontaneous
  Country: AU (occurrence: AU)
  Receive Date: 20220426
  Receipt Date: 20220718
  Transmission Date: 20221026
  Serious: Yes (Other)
  Sender: FDA-Public Use
  Company Number: AU-MYLANLABS-2022M1008852

PATIENT
  Age: 22 Year
  Sex: Male

DRUGS (3)
  1. CLOZARIL [Suspect]
     Active Substance: CLOZAPINE
     Indication: Schizophrenia
     Dosage: 600 MILLIGRAM
     Route: 048
     Dates: start: 20180702
  2. CLOZARIL [Suspect]
     Active Substance: CLOZAPINE
     Dosage: 500 MILLIGRAM, QD
     Route: 048
  3. CLOZARIL [Suspect]
     Active Substance: CLOZAPINE
     Dosage: 500 MILLIGRAM
     Route: 048
     Dates: start: 20180702

REACTIONS (5)
  - Seizure [Recovering/Resolving]
  - Drug level fluctuating [Recovered/Resolved]
  - Therapy cessation [Unknown]
  - White blood cell count decreased [Recovered/Resolved]
  - Neutrophil count decreased [Recovered/Resolved]

NARRATIVE: CASE EVENT DATE: 20220701
